FAERS Safety Report 13415613 (Version 1)
Quarter: 2017Q2

REPORT INFORMATION
  Report Type: Spontaneous
  Country: US (occurrence: US)
  Receive Date: 20170406
  Receipt Date: 20170406
  Transmission Date: 20170830
  Serious: Yes (Other)
  Sender: FDA-Public Use
  Company Number: US-SA-2017SA056066

PATIENT
  Age: 76 Year
  Sex: Male

DRUGS (3)
  1. SOLOSTAR [Concomitant]
     Active Substance: DEVICE
     Indication: TYPE 2 DIABETES MELLITUS
     Dates: start: 2012
  2. METFORMIN [Concomitant]
     Active Substance: METFORMIN HYDROCHLORIDE
     Dosage: 500 MG/ 4 PILLS PER DAY
  3. LANTUS SOLOSTAR [Suspect]
     Active Substance: INSULIN GLARGINE
     Indication: TYPE 2 DIABETES MELLITUS
     Dosage: DOSE:24 UNIT(S)
     Route: 065
     Dates: start: 2012

REACTIONS (7)
  - Drug ineffective [Unknown]
  - Blood glucose increased [Unknown]
  - Intentional product misuse [Unknown]
  - Thyroid disorder [Unknown]
  - Glycosylated haemoglobin increased [Unknown]
  - Myocardial infarction [Unknown]
  - Feeling abnormal [Unknown]
